FAERS Safety Report 4699065-1 (Version None)
Quarter: 2005Q2

REPORT INFORMATION
  Report Type: 
  Country: None (occurrence: None)
  Receive Date: 20050624
  Receipt Date: 20050601
  Transmission Date: 20051028
  Serious: Yes (Other)
  Sender: FDA-Public Use
  Company Number: GB-BRISTOL-MYERS SQUIBB COMPANY-12989547

PATIENT
  Age: 62 Year
  Sex: Female

DRUGS (4)
  1. IXABEPILONE [Suspect]
     Indication: BREAST CANCER
     Dosage: THERAPY INITIATED 21-DEC-2004-ADMINISTERED TO 11-MAY-2005(COURSE 6).DOSE: 60 MG.
     Route: 042
     Dates: start: 20050511, end: 20050511
  2. CAPECITABINE [Suspect]
     Indication: BREAST CANCER
     Dosage: THERAPY INITIATED 21-DEC-2004.
     Route: 048
  3. THYROXINE [Concomitant]
     Dates: start: 20020101
  4. LORON [Concomitant]
     Dates: start: 20020101

REACTIONS (1)
  - RETINAL DISORDER [None]
